FAERS Safety Report 4470226-X (Version None)
Quarter: 2004Q4

REPORT INFORMATION
  Report Type: 
  Country: None (occurrence: None)
  Receive Date: 20041008
  Receipt Date: 20041005
  Transmission Date: 20050328
  Serious: Yes (Hospitalization)
  Sender: FDA-Public Use
  Company Number: AU-MERCK-0410AUS00051

PATIENT
  Age: 62 Year
  Sex: Male

DRUGS (2)
  1. FLECAINIDE ACETATE [Concomitant]
     Indication: CARDIOMYOPATHY
     Route: 065
     Dates: start: 19840101
  2. VIOXX [Suspect]
     Indication: ARTHRITIS
     Route: 048
     Dates: start: 19990901, end: 20041001

REACTIONS (5)
  - CIRCULATORY COLLAPSE [None]
  - FATIGUE [None]
  - INTERNATIONAL NORMALISED RATIO INCREASED [None]
  - PALPITATIONS [None]
  - SOCIAL AVOIDANT BEHAVIOUR [None]
